FAERS Safety Report 10746754 (Version 1)
Quarter: 2015Q1

REPORT INFORMATION
  Report Type: Spontaneous
  Country: FR (occurrence: FR)
  Receive Date: 20150128
  Receipt Date: 20150128
  Transmission Date: 20150721
  Serious: Yes (Other)
  Sender: FDA-Public Use
  Company Number: FR-ROCHE-1525579

PATIENT
  Age: 60 Year
  Sex: Female
  Weight: 63 kg

DRUGS (6)
  1. CARBOPLATIN. [Suspect]
     Active Substance: CARBOPLATIN
     Indication: OVARIAN CANCER
     Route: 042
     Dates: start: 20110711, end: 20111115
  2. AVASTIN [Suspect]
     Active Substance: BEVACIZUMAB
     Indication: OVARIAN CANCER
     Route: 042
     Dates: start: 20110711, end: 201303
  3. COSOPT [Concomitant]
     Active Substance: DORZOLAMIDE HYDROCHLORIDE\TIMOLOL MALEATE
     Indication: VISUAL ACUITY REDUCED
     Route: 047
     Dates: start: 2004
  4. PARIET [Concomitant]
     Active Substance: RABEPRAZOLE SODIUM
  5. ALTEIS [Concomitant]
     Active Substance: OLMESARTAN MEDOXOMIL
  6. TAXOL [Suspect]
     Active Substance: PACLITAXEL
     Indication: OVARIAN CANCER
     Route: 042
     Dates: start: 20110711, end: 20111115

REACTIONS (2)
  - Cerebellar atrophy [Not Recovered/Not Resolved]
  - Encephalitis [Not Recovered/Not Resolved]

NARRATIVE: CASE EVENT DATE: 20121224
